FAERS Safety Report 5107102-5 (Version None)
Quarter: 2006Q3

REPORT INFORMATION
  Report Type: 
  Country: None (occurrence: None)
  Receive Date: 20060913
  Receipt Date: 20060829
  Transmission Date: 20061208
  Serious: Yes (Other)
  Sender: FDA-Public Use
  Company Number: 2006S1008208

PATIENT
  Sex: Female
  Weight: 81.6475 kg

DRUGS (5)
  1. FUROSEMIDE [Suspect]
     Indication: FLUID RETENTION
     Dosage: 20 MG;QD;PO
     Route: 048
     Dates: start: 20000101, end: 20050101
  2. ATORVASTATIN [Concomitant]
  3. AMLODIPINE BESYLATE W/BENAZEPRIL HYDROCHLOR. [Concomitant]
  4. PANTOPRAZOLE SODIUM [Concomitant]
  5. ALPRAZOLAM [Concomitant]

REACTIONS (5)
  - ANXIETY [None]
  - BLOOD SODIUM INCREASED [None]
  - DYSPNOEA [None]
  - PALPITATIONS [None]
  - PANIC ATTACK [None]
